FAERS Safety Report 8537473-9 (Version None)
Quarter: 2012Q3

REPORT INFORMATION
  Report Type: 
  Country: None (occurrence: None)
  Receive Date: 20120712
  Receipt Date: 20120702
  Transmission Date: 20120928
  Serious: Yes (Other)
  Sender: FDA-Public Use
  Company Number: GGEL120700825

PATIENT
  Age: 49 Year
  Sex: Female

DRUGS (7)
  1. CLOZARIL [Suspect]
     Indication: SCHIZOPHRENIA
     Dosage: ORAL
     Route: 048
     Dates: start: 20120112, end: 20120117
  2. CLOZARIL [Suspect]
     Indication: SCHIZOPHRENIA
     Dosage: ORAL
     Route: 048
     Dates: start: 20060814, end: 20120109
  3. CLOZARIL [Suspect]
     Indication: SCHIZOPHRENIA
     Dosage: ORAL
     Route: 048
     Dates: start: 20120112
  4. AMOXICILLIN [Concomitant]
  5. MIRTAZAPINE [Suspect]
     Indication: DEPRESSIVE SYMPTOM
     Dosage: ORAL
     Route: 048
     Dates: start: 20060101, end: 20120121
  6. TOPIRAMATE [Suspect]
     Indication: PSYCHOTIC DISORDER
     Dosage: ORAL
     Route: 048
     Dates: start: 20070101, end: 20120121
  7. ZOPICLONE (ZOPICLONE) [Concomitant]

REACTIONS (8)
  - SCRATCH [None]
  - TOOTH INFECTION [None]
  - INJURY [None]
  - TOOTHACHE [None]
  - NEUTROPENIA [None]
  - LACERATION [None]
  - WHITE BLOOD CELL COUNT DECREASED [None]
  - ROAD TRAFFIC ACCIDENT [None]
